FAERS Safety Report 4472418-2 (Version None)
Quarter: 2004Q4

REPORT INFORMATION
  Report Type: 
  Country: None (occurrence: None)
  Receive Date: 20041007
  Receipt Date: 20040929
  Transmission Date: 20050328
  Serious: Yes (Death, Other)
  Sender: FDA-Public Use
  Company Number: USA-2003-0009845

PATIENT
  Age: 20 Year
  Sex: Male

DRUGS (3)
  1. OXYCONTIN [Suspect]
  2. ALCOHOL (ETHANOL) [Suspect]
  3. COCAINE (COCAINE) [Suspect]

REACTIONS (3)
  - ALCOHOL USE [None]
  - DRUG ABUSER [None]
  - VICTIM OF HOMICIDE [None]
